FAERS Safety Report 6518715-8 (Version None)
Quarter: 2009Q4

REPORT INFORMATION
  Report Type: 
  Country: None (occurrence: None)
  Receive Date: 20091228
  Receipt Date: 20091214
  Transmission Date: 20100525
  Serious: Yes (Hospitalization, Other)
  Sender: FDA-Public Use
  Company Number: PHHY2009JP42775

PATIENT
  Sex: Female
  Weight: 40 kg

DRUGS (6)
  1. VOLTAREN [Suspect]
     Indication: PERICORONITIS
     Dosage: 25 MG, PRN
     Route: 048
     Dates: start: 20080408
  2. VOLTAREN [Suspect]
     Indication: GINGIVAL ABSCESS
     Dosage: 25 MG, PRN
     Route: 048
     Dates: start: 20080725
  3. BAREON [Suspect]
     Indication: PERICORONITIS
     Dosage: 600 MG/DAY
     Route: 048
     Dates: start: 20080408, end: 20080411
  4. BAREON [Suspect]
     Dosage: 600 MG/DAY
     Route: 048
     Dates: start: 20080623, end: 20080626
  5. BAREON [Suspect]
     Dosage: 600 MG/DAY
     Route: 048
     Dates: start: 20080725, end: 20080802
  6. LEFTOSE [Concomitant]
     Indication: GINGIVAL ABSCESS
     Dosage: 150 MG, UNK
     Route: 048
     Dates: start: 20080801, end: 20080803

REACTIONS (16)
  - BLOOD ALKALINE PHOSPHATASE INCREASED [None]
  - DRUG ERUPTION [None]
  - ERYTHEMA [None]
  - GINGIVAL OPERATION [None]
  - HAEMATOCRIT DECREASED [None]
  - HAEMOGLOBIN DECREASED [None]
  - LYMPHADENOPATHY [None]
  - LYMPHOCYTE PERCENTAGE DECREASED [None]
  - PAIN [None]
  - PHOTOSENSITIVITY REACTION [None]
  - PROTEIN TOTAL DECREASED [None]
  - PRURITUS [None]
  - PYREXIA [None]
  - RED BLOOD CELL COUNT DECREASED [None]
  - SUNBURN [None]
  - WHITE BLOOD CELL COUNT DECREASED [None]
